FAERS Safety Report 14790608 (Version 1)
Quarter: 2018Q2

REPORT INFORMATION
  Report Type: Report from Study
  Country: US (occurrence: US)
  Receive Date: 20180423
  Receipt Date: 20180423
  Transmission Date: 20180711
  Serious: No
  Sender: FDA-Public Use
  Company Number: US-AMGEN-USASL2018054096

PATIENT
  Age: 46 Year
  Sex: Male

DRUGS (1)
  1. ENBREL [Suspect]
     Active Substance: ETANERCEPT
     Indication: POST TREATMENT LYME DISEASE SYNDROME
     Dosage: UNK
     Route: 065

REACTIONS (2)
  - Joint swelling [Recovering/Resolving]
  - Off label use [Unknown]
